FAERS Safety Report 7954011-X (Version None)
Quarter: 2011Q4

REPORT INFORMATION
  Report Type: 
  Country: None (occurrence: None)
  Receive Date: 20111202
  Receipt Date: 20111202
  Transmission Date: 20120403
  Serious: Yes (Life-Threatening, Hospitalization)
  Sender: FDA-Public Use
  Company Number: None

PATIENT
  Age: 33 Year
  Sex: Female
  Weight: 88.45 kg

DRUGS (1)
  1. YAZ [Suspect]

REACTIONS (7)
  - VOMITING [None]
  - CEREBRAL VENOUS THROMBOSIS [None]
  - MIGRAINE [None]
  - NERVOUS SYSTEM DISORDER [None]
  - QUALITY OF LIFE DECREASED [None]
  - DELUSION [None]
  - NECK PAIN [None]
